FAERS Safety Report 8444414-1 (Version None)
Quarter: 2012Q2

REPORT INFORMATION
  Report Type: 
  Country: None (occurrence: None)
  Receive Date: 20120618
  Receipt Date: 20120607
  Transmission Date: 20120825
  Serious: Yes (Hospitalization, Other)
  Sender: FDA-Public Use
  Company Number: FR-ASTRAZENECA-2012SE38098

PATIENT
  Age: 16314 Day
  Sex: Male

DRUGS (3)
  1. BRILINTA [Suspect]
     Route: 048
     Dates: start: 20120312, end: 20120411
  2. ASPIRIN [Concomitant]
     Route: 048
     Dates: start: 20120313
  3. BRILINTA [Suspect]
     Indication: ACUTE MYOCARDIAL INFARCTION
     Route: 048
     Dates: start: 20120311, end: 20120311

REACTIONS (1)
  - ATRIOVENTRICULAR BLOCK COMPLETE [None]
